FAERS Safety Report 19079030 (Version 1)
Quarter: 2021Q1

REPORT INFORMATION
  Report Type: Spontaneous
  Country: CA (occurrence: CA)
  Receive Date: 20210331
  Receipt Date: 20210331
  Transmission Date: 20210420
  Serious: Yes (Other)
  Sender: FDA-Public Use
  Company Number: CA-VALIDUS PHARMACEUTICALS LLC-CA-2021VAL000871

PATIENT
  Age: 69 Year
  Sex: Female

DRUGS (3)
  1. ADEMPAS [Suspect]
     Active Substance: RIOCIGUAT
     Indication: PULMONARY HYPERTENSION
     Dosage: 1.5 MG, TID
     Route: 048
  2. COVERSYL AM [Concomitant]
     Active Substance: AMLODIPINE BESYLATE\PERINDOPRIL ERBUMINE
     Indication: PRODUCT USED FOR UNKNOWN INDICATION
  3. FUROSEMIDE. [Suspect]
     Active Substance: FUROSEMIDE
     Indication: RENAL FAILURE
     Dosage: 20 MG, QD
     Route: 048

REACTIONS (19)
  - Balance disorder [Not Recovered/Not Resolved]
  - Lung disorder [Not Recovered/Not Resolved]
  - Osteoporosis [Not Recovered/Not Resolved]
  - Nasal congestion [Not Recovered/Not Resolved]
  - Blood pressure decreased [Not Recovered/Not Resolved]
  - Anxiety [Not Recovered/Not Resolved]
  - Dizziness [Not Recovered/Not Resolved]
  - Cardiac failure [Not Recovered/Not Resolved]
  - Anaemia [Not Recovered/Not Resolved]
  - Rib fracture [Not Recovered/Not Resolved]
  - Poor quality sleep [Not Recovered/Not Resolved]
  - Fatigue [Not Recovered/Not Resolved]
  - Renal failure [Not Recovered/Not Resolved]
  - Joint swelling [Not Recovered/Not Resolved]
  - Hypotension [Not Recovered/Not Resolved]
  - Chest pain [Not Recovered/Not Resolved]
  - Nervousness [Not Recovered/Not Resolved]
  - Blood pressure diastolic decreased [Not Recovered/Not Resolved]
  - Dyspnoea [Not Recovered/Not Resolved]
